FAERS Safety Report 20591813 (Version 1)
Quarter: 2022Q1

REPORT INFORMATION
  Report Type: Spontaneous
  Country: CN (occurrence: CN)
  Receive Date: 20220314
  Receipt Date: 20220314
  Transmission Date: 20220423
  Serious: Yes (Other)
  Sender: FDA-Public Use
  Company Number: CN-PFIZER INC-202200359218

PATIENT
  Age: 28 Year
  Sex: Female
  Weight: 60 kg

DRUGS (1)
  1. METHYLPREDNISOLONE SODIUM SUCCINATE [Suspect]
     Active Substance: METHYLPREDNISOLONE SODIUM SUCCINATE
     Indication: Nervous system disorder
     Dosage: 80 MG, 1X/DAY
     Route: 041
     Dates: start: 20220216, end: 20220216

REACTIONS (4)
  - Chest discomfort [Recovering/Resolving]
  - Palpitations [Recovering/Resolving]
  - Hypoaesthesia [Recovering/Resolving]
  - Off label use [Unknown]

NARRATIVE: CASE EVENT DATE: 20220216
